FAERS Safety Report 9007611 (Version 1)
Quarter: 2013Q1

REPORT INFORMATION
  Report Type: Spontaneous
  Country: US (occurrence: US)
  Receive Date: 20130111
  Receipt Date: 20130111
  Transmission Date: 20140127
  Serious: No
  Sender: FDA-Public Use
  Company Number: US-BIOGENIDEC-2013BI000408

PATIENT
  Sex: Female

DRUGS (2)
  1. TYSABRI [Suspect]
     Indication: MULTIPLE SCLEROSIS
     Route: 042
     Dates: start: 20110310
  2. SYNTHROID [Concomitant]
     Indication: THYROIDECTOMY
     Dates: start: 1995

REACTIONS (5)
  - Fatigue [Recovered/Resolved]
  - Thyroid function test abnormal [Not Recovered/Not Resolved]
  - Vitamin D decreased [Not Recovered/Not Resolved]
  - Irritability [Recovered/Resolved]
  - Drug effect decreased [Recovered/Resolved]
